FAERS Safety Report 18050850 (Version 1)
Quarter: 2020Q3

REPORT INFORMATION
  Report Type: Spontaneous
  Country: NZ (occurrence: NZ)
  Receive Date: 20200721
  Receipt Date: 20200721
  Transmission Date: 20201103
  Serious: Yes (Death, Hospitalization)
  Sender: FDA-Public Use
  Company Number: NZ-PFIZER INC-2020277900

PATIENT
  Age: 68 Year
  Sex: Male

DRUGS (1)
  1. TAFAMIDIS [Suspect]
     Active Substance: TAFAMIDIS MEGLUMINE
     Indication: CARDIAC AMYLOIDOSIS
     Dosage: UNK
     Dates: start: 20181206, end: 20191203

REACTIONS (2)
  - Sudden cardiac death [Fatal]
  - Condition aggravated [Not Recovered/Not Resolved]

NARRATIVE: CASE EVENT DATE: 2020
